FAERS Safety Report 4282331-1 (Version None)
Quarter: 2004Q1

REPORT INFORMATION
  Report Type: 
  Country: None (occurrence: None)
  Receive Date: 20040112
  Receipt Date: 20031020
  Transmission Date: 20041129
  Serious: Yes (Death)
  Sender: FDA-Public Use
  Company Number: 349800

PATIENT
  Age: 42 Year
  Sex: Male

DRUGS (1)
  1. FUZEON [Suspect]
     Indication: HIV INFECTION
     Dosage: SUBCUTANEOUS
     Route: 058

REACTIONS (5)
  - ACQUIRED IMMUNODEFICIENCY SYNDROME [None]
  - ADVERSE EVENT [None]
  - CYTOMEGALOVIRUS CHORIORETINITIS [None]
  - GASTROENTERITIS CRYPTOSPORIDIAL [None]
  - LYMPHOMA [None]
